FAERS Safety Report 5299087-6 (Version None)
Quarter: 2007Q2

REPORT INFORMATION
  Report Type: 
  Country: None (occurrence: None)
  Receive Date: 20070412
  Receipt Date: 20070412
  Transmission Date: 20071010
  Serious: Yes (Life-Threatening)
  Sender: FDA-Public Use
  Company Number: None

PATIENT
  Age: 86 Year
  Sex: Female

DRUGS (6)
  1. LYRICA [Suspect]
     Dosage: 75 MG TWICE DAILY PO
     Route: 048
     Dates: start: 20070314, end: 20070410
  2. AVAPRO [Concomitant]
  3. CELEBREX [Concomitant]
  4. BUMEX [Concomitant]
  5. HUMALOG MIX 75/25 [Concomitant]
  6. ASPIRIN [Concomitant]

REACTIONS (4)
  - CHEST DISCOMFORT [None]
  - HYPERSENSITIVITY [None]
  - OEDEMA MOUTH [None]
  - PHARYNGEAL OEDEMA [None]
